FAERS Safety Report 5106878-0 (Version None)
Quarter: 2006Q3

REPORT INFORMATION
  Report Type: 
  Country: None (occurrence: None)
  Receive Date: 20060913
  Receipt Date: 20060901
  Transmission Date: 20061208
  Serious: Yes (Life-Threatening, Hospitalization)
  Sender: FDA-Public Use
  Company Number: 112373ISR

PATIENT
  Age: 66 Year
  Sex: Male

DRUGS (1)
  1. DICLOFENAC [Suspect]
     Indication: BACK PAIN

REACTIONS (9)
  - ANOREXIA [None]
  - ECTHYMA [None]
  - ERYTHEMA [None]
  - ESCHAR [None]
  - LETHARGY [None]
  - MALAISE [None]
  - NECROSIS [None]
  - NEUTROPENIA [None]
  - PSEUDOMONAS INFECTION [None]
